FAERS Safety Report 10166410 (Version 1)
Quarter: 2014Q2

REPORT INFORMATION
  Report Type: Spontaneous
  Country: US (occurrence: None)
  Receive Date: 20140509
  Receipt Date: 20140509
  Transmission Date: 20141212
  Serious: Yes (Hospitalization)
  Sender: FDA-Public Use
  Company Number: None

PATIENT
  Age: 55 Year
  Sex: Female
  Weight: 81.4 kg

DRUGS (30)
  1. POTASSIUM CHLORIDE [Suspect]
     Indication: HYPOKALAEMIA
     Route: 048
     Dates: start: 20140304, end: 20140308
  2. ALPRAZOLAM [Concomitant]
  3. ACETAMINOPHEN [Concomitant]
  4. FLORANEX [Concomitant]
  5. ALBUTEROL [Concomitant]
  6. ASCORBIC ACID [Concomitant]
  7. BETA-CAROETNE [Concomitant]
  8. DISACODYL [Concomitant]
  9. DEPAKOTE [Concomitant]
  10. DOCUSATE SODIUM [Concomitant]
  11. ESCITALOPRAM [Concomitant]
  12. FERROUS SULFATE [Concomitant]
  13. ADVAIR [Concomitant]
  14. GLUCAGON [Concomitant]
  15. HYPOGLYCEMIA [Concomitant]
  16. HALDOL [Concomitant]
  17. NOVOLOG [Concomitant]
  18. LISINOPRIL [Concomitant]
  19. MILK OF MAGNESIA [Concomitant]
  20. MAG-AL PLUS [Concomitant]
  21. MULTIVITAMIN [Concomitant]
  22. FLEET ENEMA [Concomitant]
  23. NITROSTAT [Concomitant]
  24. NYSTATIN [Concomitant]
  25. POTASSIUM CHLRORIDE [Concomitant]
  26. SPIRIVA [Concomitant]
  27. TRAZODONE [Concomitant]
  28. DIPHENHYDRAMINE [Concomitant]
  29. METFORMIN [Concomitant]
  30. PERCOCET [Concomitant]

REACTIONS (1)
  - Hyperkalaemia [None]
